FAERS Safety Report 25680834 (Version 2)
Quarter: 2025Q3

REPORT INFORMATION
  Report Type: Report from Study
  Country: US (occurrence: US)
  Receive Date: 20250814
  Receipt Date: 20250909
  Transmission Date: 20251020
  Serious: No
  Sender: SANDOZ
  Company Number: US-SANDOZ-SDZ2025US058334

PATIENT
  Age: 5 Year
  Sex: Female

DRUGS (4)
  1. OMNITROPE [Suspect]
     Active Substance: SOMATROPIN
     Indication: Short stature
     Dosage: 0.5 MG, QD
     Route: 058
  2. OMNITROPE [Suspect]
     Active Substance: SOMATROPIN
     Indication: Short stature
     Dosage: 0.5 MG, QD
     Route: 058
  3. OMNITROPE [Suspect]
     Active Substance: SOMATROPIN
     Dosage: 5 MG, QD
     Route: 065
     Dates: start: 20250903
  4. OMNITROPE [Suspect]
     Active Substance: SOMATROPIN
     Dosage: 5 MG, QD
     Route: 065
     Dates: start: 20250903

REACTIONS (3)
  - Injection site bruising [Not Recovered/Not Resolved]
  - Product complaint [Unknown]
  - Circumstance or information capable of leading to medication error [Unknown]

NARRATIVE: CASE EVENT DATE: 20250903
